FAERS Safety Report 10022810 (Version 1)
Quarter: 2014Q1

REPORT INFORMATION
  Report Type: Spontaneous
  Country: US (occurrence: US)
  Receive Date: 20140319
  Receipt Date: 20140319
  Transmission Date: 20141002
  Serious: Yes (Other)
  Sender: FDA-Public Use
  Company Number: US-PFIZER INC-2014075639

PATIENT
  Age: 64 Year
  Sex: Male
  Weight: 76.64 kg

DRUGS (2)
  1. PREPARATION H [Suspect]
     Indication: ANORECTAL DISCOMFORT
     Dosage: UNK
     Route: 054
     Dates: start: 20140312, end: 20140313
  2. PREPARATION H [Suspect]
     Indication: PRURITUS

REACTIONS (1)
  - Rectal haemorrhage [Recovered/Resolved]
